FAERS Safety Report 12651434 (Version 3)
Quarter: 2016Q3

REPORT INFORMATION
  Report Type: Spontaneous
  Country: JP (occurrence: JP)
  Receive Date: 20160815
  Receipt Date: 20160916
  Transmission Date: 20161109
  Serious: Yes (Other)
  Sender: FDA-Public Use
  Company Number: JP-BAYER-2016-151938

PATIENT
  Sex: Female
  Weight: 3 kg

DRUGS (3)
  1. WARFARIN [Suspect]
     Active Substance: WARFARIN
     Dosage: 4 MG, QD
     Route: 064
  2. HEPARIN [Suspect]
     Active Substance: HEPARIN SODIUM
     Dosage: 10000 U, QD
     Route: 064
  3. BAYASPIRIN [Suspect]
     Active Substance: ASPIRIN
     Dosage: 100 MG, QD
     Route: 064

REACTIONS (7)
  - Cerebral haemorrhage [None]
  - Dandy-Walker syndrome [None]
  - Labelled drug-drug interaction medication error [None]
  - Foetal exposure during pregnancy [Recovered/Resolved]
  - Hydrocephalus [Recovering/Resolving]
  - Drug administration error [None]
  - Apgar score low [None]
